FAERS Safety Report 12711881 (Version 3)
Quarter: 2016Q4

REPORT INFORMATION
  Report Type: Report from Study
  Country: MY (occurrence: MY)
  Receive Date: 20160902
  Receipt Date: 20161007
  Transmission Date: 20170207
  Serious: Yes (Death, Hospitalization, Other)
  Sender: FDA-Public Use
  Company Number: PHHY2016MY104850

PATIENT
  Sex: Female

DRUGS (1)
  1. AFINITOR [Suspect]
     Active Substance: EVEROLIMUS
     Indication: BREAST CANCER
     Dosage: 10 MG, UNK
     Route: 048
     Dates: start: 201606

REACTIONS (15)
  - Death [Fatal]
  - Abasia [Not Recovered/Not Resolved]
  - Dyspnoea [Not Recovered/Not Resolved]
  - Pain [Not Recovered/Not Resolved]
  - Movement disorder [Not Recovered/Not Resolved]
  - Fatigue [Not Recovered/Not Resolved]
  - Lung disorder [Recovering/Resolving]
  - Eating disorder [Not Recovered/Not Resolved]
  - Chills [Not Recovered/Not Resolved]
  - Torticollis [Not Recovered/Not Resolved]
  - Asthenia [Recovering/Resolving]
  - Chapped lips [Recovering/Resolving]
  - Muscular weakness [Not Recovered/Not Resolved]
  - Vomiting [Not Recovered/Not Resolved]
  - Mouth ulceration [Not Recovered/Not Resolved]
